FAERS Safety Report 7933311-3 (Version None)
Quarter: 2011Q4

REPORT INFORMATION
  Report Type: 
  Country: None (occurrence: None)
  Receive Date: 20111121
  Receipt Date: 20111121
  Transmission Date: 20120403
  Serious: Yes (Hospitalization, Other)
  Sender: FDA-Public Use
  Company Number: None

PATIENT
  Sex: Male
  Weight: 79.3795 kg

DRUGS (1)
  1. SULFAMETHOXAZOLE AND TRIMETHOPRIM DOUBLE STRENGTH [Suspect]
     Indication: INFECTION
     Dosage: 1 TABLET 2X A DAY MOUTH
     Route: 048
     Dates: start: 20111026, end: 20111104

REACTIONS (4)
  - GENERALISED ERYTHEMA [None]
  - HYPOTENSION [None]
  - LUNG DISORDER [None]
  - CARDIAC DISORDER [None]
